FAERS Safety Report 4874019-0 (Version None)
Quarter: 2006Q1

REPORT INFORMATION
  Report Type: 
  Country: None (occurrence: None)
  Receive Date: 20060106
  Receipt Date: 20060103
  Transmission Date: 20060701
  Serious: Yes (Life-Threatening)
  Sender: FDA-Public Use
  Company Number: 2006CG00005

PATIENT
  Age: 51 Year
  Sex: Female
  Weight: 54 kg

DRUGS (7)
  1. ENTOCORT [Suspect]
     Indication: CROHN'S DISEASE
     Route: 048
     Dates: start: 20041101
  2. IMUREL [Suspect]
     Indication: CROHN'S DISEASE
     Route: 048
     Dates: start: 20041101, end: 20050209
  3. REMICADE [Suspect]
     Indication: CROHN'S DISEASE
     Route: 042
     Dates: start: 20041202, end: 20041202
  4. REMICADE [Suspect]
     Route: 042
     Dates: start: 20041229, end: 20041229
  5. REMICADE [Suspect]
     Route: 042
     Dates: start: 20050120, end: 20050120
  6. FIV-ASA [Concomitant]
     Indication: CROHN'S DISEASE
     Route: 048
     Dates: start: 20040729
  7. CORTICOSTEROIDS [Concomitant]
     Dates: start: 20041201

REACTIONS (15)
  - ASCITES [None]
  - ATRIAL FIBRILLATION [None]
  - CELLULITIS [None]
  - CONDITION AGGRAVATED [None]
  - CONSTIPATION [None]
  - CROHN'S DISEASE [None]
  - CYTOMEGALOVIRUS INFECTION [None]
  - FISTULA [None]
  - PANCYTOPENIA [None]
  - PERITONITIS [None]
  - PLEURAL EFFUSION [None]
  - SEPSIS [None]
  - SYSTEMIC INFLAMMATORY RESPONSE SYNDROME [None]
  - THROMBOPHLEBITIS SUPERFICIAL [None]
  - TUBERCULOSIS GASTROINTESTINAL [None]
